FAERS Safety Report 4528510-7 (Version None)
Quarter: 2004Q4

REPORT INFORMATION
  Report Type: 
  Country: None (occurrence: None)
  Receive Date: 20041216
  Receipt Date: 20040110
  Transmission Date: 20050328
  Serious: No
  Sender: FDA-Public Use
  Company Number: US-BRISTOL-MYERS SQUIBB COMPANY-12477824

PATIENT

DRUGS (1)
  1. QUESTRAN [Suspect]
     Indication: DIARRHOEA

REACTIONS (1)
  - DRUG INEFFECTIVE [None]
